FAERS Safety Report 8481376-5 (Version None)
Quarter: 2012Q2

REPORT INFORMATION
  Report Type: 
  Country: None (occurrence: None)
  Receive Date: 20120626
  Receipt Date: 20120626
  Transmission Date: 20120825
  Serious: Yes (Hospitalization)
  Sender: FDA-Public Use
  Company Number: None

PATIENT
  Age: 57 Year
  Sex: Male
  Weight: 111.4 kg

DRUGS (3)
  1. ERBITUX [Suspect]
     Indication: HEAD AND NECK CANCER
     Dosage: 615MG WEEKLY, IV
     Route: 042
     Dates: start: 20120411, end: 20120530
  2. RAD001 [Suspect]
     Indication: HEAD AND NECK CANCER
     Dosage: 2.5MG, QOD, ORAL
     Route: 048
     Dates: start: 20120411, end: 20120606
  3. CARBOPLATIN [Suspect]
     Indication: HEAD AND NECK CANCER
     Dosage: 300MG, WEEKLY, IV
     Route: 042
     Dates: start: 20120411, end: 20120530

REACTIONS (3)
  - PYREXIA [None]
  - MENTAL STATUS CHANGES [None]
  - DISEASE PROGRESSION [None]
